FAERS Safety Report 13796127 (Version 3)
Quarter: 2017Q3

REPORT INFORMATION
  Report Type: Report from Study
  Country: US (occurrence: BR)
  Receive Date: 20170726
  Receipt Date: 20170911
  Transmission Date: 20171127
  Serious: Yes (Death, Other)
  Sender: FDA-Public Use
  Company Number: US-SUNOVION-2017SUN003179

PATIENT
  Sex: Female
  Weight: 49 kg

DRUGS (1)
  1. INDACATEROL AND GLYCOPYRROLATE [Suspect]
     Active Substance: GLYCOPYRROLATE\INDACATEROL MALEATE
     Indication: EMPHYSEMA
     Dosage: UNK, BID
     Route: 055
     Dates: start: 201702

REACTIONS (3)
  - Coronary artery insufficiency [Unknown]
  - Drug prescribing error [Unknown]
  - Infarction [Fatal]
